FAERS Safety Report 9433779 (Version 1)
Quarter: 2013Q3

REPORT INFORMATION
  Report Type: Spontaneous
  Country: FR (occurrence: FR)
  Receive Date: 20130731
  Receipt Date: 20130731
  Transmission Date: 20140515
  Serious: Yes (Other)
  Sender: FDA-Public Use
  Company Number: FR-ASTRAZENECA-2013SE55768

PATIENT
  Age: 2727 Week
  Sex: Male

DRUGS (2)
  1. EMLA [Suspect]
     Route: 061
     Dates: start: 20130620, end: 20130620
  2. QUTENZA [Suspect]
     Dosage: TWO PATCHES IN ONE HOUR
     Route: 003
     Dates: start: 20130620, end: 20130620

REACTIONS (1)
  - Panniculitis [Not Recovered/Not Resolved]
